FAERS Safety Report 24224902 (Version 1)
Quarter: 2024Q3

REPORT INFORMATION
  Report Type: Spontaneous
  Country: US (occurrence: US)
  Receive Date: 20240819
  Receipt Date: 20240819
  Transmission Date: 20241017
  Serious: No
  Sender: JOHNSON AND JOHNSON
  Company Number: US-JNJFOC-20240834379

PATIENT
  Age: 7 Decade
  Sex: Female

DRUGS (1)
  1. WOMENS ROGAINE UNSCENTED [Suspect]
     Active Substance: MINOXIDIL
     Indication: Alopecia
     Dosage: HALF OF CUP FULL
     Route: 061
     Dates: start: 2020, end: 202403

REACTIONS (1)
  - Application site discolouration [Recovering/Resolving]

NARRATIVE: CASE EVENT DATE: 20200701
